FAERS Safety Report 6325102-4 (Version None)
Quarter: 2009Q3

REPORT INFORMATION
  Report Type: 
  Country: None (occurrence: None)
  Receive Date: 20090824
  Receipt Date: 20090707
  Transmission Date: 20100115
  Serious: No
  Sender: FDA-Public Use
  Company Number: US-ABBOTT-09P-163-0583783-00

PATIENT
  Sex: Male

DRUGS (13)
  1. NIASPAN [Suspect]
     Indication: LOW DENSITY LIPOPROTEIN INCREASED
     Dates: start: 20090501, end: 20090630
  2. METOPROLOL [Concomitant]
     Indication: DRUG USE FOR UNKNOWN INDICATION
  3. COQ10 [Concomitant]
     Indication: DRUG USE FOR UNKNOWN INDICATION
  4. GRAPESEED [Concomitant]
     Indication: DRUG USE FOR UNKNOWN INDICATION
  5. AMINO ACID INJ [Concomitant]
     Indication: DRUG USE FOR UNKNOWN INDICATION
  6. VIT D3 [Concomitant]
     Indication: DRUG USE FOR UNKNOWN INDICATION
  7. LECITHIN [Concomitant]
     Indication: DRUG USE FOR UNKNOWN INDICATION
  8. MILK THISTLE [Concomitant]
     Indication: DRUG USE FOR UNKNOWN INDICATION
  9. JOINT CARE [Concomitant]
     Indication: DRUG USE FOR UNKNOWN INDICATION
  10. PROSTATE VITAMIN [Concomitant]
     Indication: DRUG USE FOR UNKNOWN INDICATION
  11. LOVAZA [Concomitant]
     Indication: DRUG USE FOR UNKNOWN INDICATION
  12. GARLIC [Concomitant]
     Indication: DRUG USE FOR UNKNOWN INDICATION
  13. ASPIRIN [Concomitant]
     Indication: DRUG USE FOR UNKNOWN INDICATION

REACTIONS (1)
  - FEELING HOT [None]
